FAERS Safety Report 13403328 (Version 2)
Quarter: 2017Q2

REPORT INFORMATION
  Report Type: Report from Study
  Country: None (occurrence: CZ)
  Receive Date: 20170404
  Receipt Date: 20170522
  Transmission Date: 20170830
  Serious: Yes (Other)
  Sender: FDA-Public Use
  Company Number: CZ-ABBVIE-17P-217-1926758-00

PATIENT
  Age: 28 Year
  Sex: Female
  Weight: 54 kg

DRUGS (3)
  1. HUMIRA [Suspect]
     Active Substance: ADALIMUMAB
     Route: 058
     Dates: start: 20170205
  2. HUMIRA [Suspect]
     Active Substance: ADALIMUMAB
     Indication: PRODUCT USED FOR UNKNOWN INDICATION
     Route: 058
     Dates: start: 20131218, end: 20170201
  3. IMURAN [Concomitant]
     Active Substance: AZATHIOPRINE
     Indication: PRODUCT USED FOR UNKNOWN INDICATION
     Route: 048
     Dates: start: 2015

REACTIONS (9)
  - Myalgia [Recovered/Resolved]
  - Cough [Recovered/Resolved]
  - Fatigue [Recovered/Resolved]
  - Mycobacterium tuberculosis complex test positive [Recovered/Resolved]
  - Body temperature increased [Recovered/Resolved]
  - Headache [Unknown]
  - Oropharyngeal pain [Unknown]
  - Asthenia [Recovered/Resolved]
  - Infection [Recovering/Resolving]

NARRATIVE: CASE EVENT DATE: 201702
